FAERS Safety Report 11097819 (Version 1)
Quarter: 2015Q2

REPORT INFORMATION
  Report Type: Spontaneous
  Country: US (occurrence: None)
  Receive Date: 20150507
  Receipt Date: 20150507
  Transmission Date: 20150821
  Serious: No
  Sender: FDA-Public Use
  Company Number: None

PATIENT
  Age: 75 Year
  Sex: Female

DRUGS (2)
  1. EXJADE [Suspect]
     Active Substance: DEFERASIROX
     Indication: IRON OVERLOAD
     Dosage: 1500MG (1750MG TOTAL) QD PO
     Route: 048
     Dates: start: 20130509
  2. EXJADE [Suspect]
     Active Substance: DEFERASIROX
     Indication: IRON OVERLOAD
     Dosage: 250MG (1750MG TOTAL) QD PO
     Route: 048
     Dates: start: 20130509

REACTIONS (2)
  - Diarrhoea [None]
  - Nausea [None]
